FAERS Safety Report 7176437-7 (Version None)
Quarter: 2010Q4

REPORT INFORMATION
  Report Type: 
  Country: None (occurrence: None)
  Receive Date: 20101220
  Receipt Date: 20101210
  Transmission Date: 20110411
  Serious: Yes (Other)
  Sender: FDA-Public Use
  Company Number: US-US-EMD SERONO, INC.-7022620

PATIENT
  Sex: Female

DRUGS (3)
  1. REBIF [Suspect]
     Indication: MULTIPLE SCLEROSIS
     Route: 058
     Dates: start: 20091130, end: 20100401
  2. REBIF [Suspect]
     Route: 058
     Dates: start: 20100401
  3. VITAMIN D SUPPLEMENT [Concomitant]
     Indication: VITAMIN SUPPLEMENTATION

REACTIONS (2)
  - BRAIN NEOPLASM [None]
  - INJECTION SITE ERYTHEMA [None]
